FAERS Safety Report 9481878 (Version 2)
Quarter: 2013Q4

REPORT INFORMATION
  Report Type: Spontaneous
  Country: GB (occurrence: GB)
  Receive Date: 20130828
  Receipt Date: 20131017
  Transmission Date: 20140711
  Serious: Yes (Other)
  Sender: FDA-Public Use
  Company Number: GB-JNJFOC-20130809045

PATIENT
  Sex: Female

DRUGS (2)
  1. NICORETTE GUM [Suspect]
     Indication: SMOKING CESSATION THERAPY
     Route: 065
  2. NICORETTE GUM [Suspect]
     Indication: SMOKING CESSATION THERAPY
     Route: 065

REACTIONS (5)
  - Periodontal disease [Unknown]
  - Nicotine dependence [Not Recovered/Not Resolved]
  - Intentional drug misuse [Not Recovered/Not Resolved]
  - Tooth loss [Unknown]
  - Alopecia [Unknown]
